FAERS Safety Report 9943446 (Version 1)
Quarter: 2014Q1

REPORT INFORMATION
  Report Type: Spontaneous
  Country: FR (occurrence: FR)
  Receive Date: 20140303
  Receipt Date: 20140303
  Transmission Date: 20141002
  Serious: Yes (Hospitalization)
  Sender: FDA-Public Use
  Company Number: PHHY2014FR024603

PATIENT
  Age: 80 Year
  Sex: Female

DRUGS (1)
  1. VOLTARENE [Suspect]
     Dosage: 1 DF, DAILY
     Route: 030
     Dates: start: 20130124, end: 20130204

REACTIONS (3)
  - Condition aggravated [Recovered/Resolved]
  - Gastric ulcer helicobacter [Recovered/Resolved]
  - Anaemia [Recovered/Resolved]
